FAERS Safety Report 22131770 (Version 2)
Quarter: 2023Q2

REPORT INFORMATION
  Report Type: Spontaneous
  Country: DE (occurrence: DE)
  Receive Date: 20230323
  Receipt Date: 20230403
  Transmission Date: 20230722
  Serious: Yes (Other)
  Sender: FDA-Public Use
  Company Number: DE-002147023-NVSC2023DE064830

PATIENT
  Age: 61 Year
  Sex: Female

DRUGS (2)
  1. ETORICOXIB [Suspect]
     Active Substance: ETORICOXIB
     Indication: Langerhans^ cell histiocytosis
     Dosage: 60 MG, QD
     Route: 048
  2. PIOGLITAZONE [Suspect]
     Active Substance: PIOGLITAZONE
     Indication: Langerhans^ cell histiocytosis
     Dosage: 30 MG, QD
     Route: 048

REACTIONS (4)
  - Oedema [Recovered/Resolved]
  - Hypertension [Unknown]
  - Therapy partial responder [Unknown]
  - Product use in unapproved indication [Unknown]
